FAERS Safety Report 9805247 (Version 1)
Quarter: 2014Q1

REPORT INFORMATION
  Report Type: Spontaneous
  Country: US (occurrence: US)
  Receive Date: 20140109
  Receipt Date: 20140109
  Transmission Date: 20141002
  Serious: Yes (Death)
  Sender: FDA-Public Use
  Company Number: US-009507513-1401USA000489

PATIENT
  Age: 65 Year
  Sex: Female

DRUGS (1)
  1. PROVENTIL [Suspect]
     Dosage: 90 MCG/1 PUFF EVERY 4 TO 6 HOURS AS NEEDED
     Route: 055

REACTIONS (1)
  - Death [Fatal]
